FAERS Safety Report 6809004-2 (Version None)
Quarter: 2010Q2

REPORT INFORMATION
  Report Type: 
  Country: None (occurrence: None)
  Receive Date: 20100630
  Receipt Date: 20091117
  Transmission Date: 20101027
  Serious: No
  Sender: FDA-Public Use
  Company Number: US-PFIZER INC-2009273159

PATIENT
  Sex: Male
  Weight: 81.633 kg

DRUGS (1)
  1. ALPRAZOLAM [Suspect]
     Indication: BIPOLAR DISORDER
     Dosage: 1 MG, 4X/DAY
     Route: 048

REACTIONS (1)
  - DRUG INEFFECTIVE [None]
